FAERS Safety Report 23268202 (Version 1)
Quarter: 2023Q4

REPORT INFORMATION
  Report Type: Spontaneous
  Country: US (occurrence: None)
  Receive Date: 20231206
  Receipt Date: 20231206
  Transmission Date: 20240110
  Serious: Yes (Death)
  Sender: FDA-Public Use
  Company Number: None

PATIENT
  Sex: Male

DRUGS (8)
  1. ABIRATERONE ACETATE [Suspect]
     Active Substance: ABIRATERONE ACETATE
     Indication: Prostate cancer
     Dosage: 250 MG ORAL??TAKKE 4 TABLES BY M0UTH EVERY DAY
     Route: 048
     Dates: start: 20230217
  2. ABIRATERONE ACETATE [Suspect]
     Active Substance: ABIRATERONE ACETATE
     Dosage: FREQUENCY : DAILY;?
     Route: 048
  3. ASPIRIN [Concomitant]
     Active Substance: ASPIRIN
  4. CARVEDILOL [Concomitant]
     Active Substance: CARVEDILOL
  5. MULTIVITAMIN [Concomitant]
  6. POT CHLORIDE POW [Concomitant]
  7. PREDNISONE [Concomitant]
  8. ROSUVASTATIN [Concomitant]

REACTIONS (1)
  - Death [None]
